FAERS Safety Report 4972248-9 (Version None)
Quarter: 2006Q2

REPORT INFORMATION
  Report Type: 
  Country: None (occurrence: None)
  Receive Date: 20060413
  Receipt Date: 20060406
  Transmission Date: 20061013
  Serious: Yes (Hospitalization)
  Sender: FDA-Public Use
  Company Number: US-KINGPHARMUSA00001-K200600437

PATIENT
  Age: 52 Year
  Sex: Male

DRUGS (8)
  1. ALTACE [Suspect]
     Dosage: 5 MG, QD
     Route: 048
     Dates: start: 20051107, end: 20060306
  2. LASIX [Suspect]
     Dosage: 80 MG, QD
     Route: 048
     Dates: start: 20051107, end: 20060307
  3. TAHOR [Concomitant]
     Dates: start: 20051107
  4. TIAPRIDAL [Concomitant]
     Dates: start: 20051107
  5. CARDENSIEL [Concomitant]
     Dates: start: 20051107
  6. KARDEGIC /FRA/ [Concomitant]
     Dates: start: 20051107
  7. PLAVIX [Concomitant]
     Dates: start: 20051107
  8. NEXIUM [Concomitant]
     Dates: start: 20051107

REACTIONS (4)
  - BLOOD CREATININE INCREASED [None]
  - BLOOD UREA INCREASED [None]
  - DEHYDRATION [None]
  - RENAL FAILURE [None]
